FAERS Safety Report 8786122 (Version 1)
Quarter: 2012Q4

REPORT INFORMATION
  Report Type: 
  Country: US (occurrence: US)
  Receive Date: 20120914
  Receipt Date: 20120914
  Transmission Date: 20130627
  Serious: Yes (Other)
  Sender: FDA-Public Use
  Company Number: US-ROCHE-1122128

PATIENT
  Sex: Female

DRUGS (2)
  1. TARCEVA [Suspect]
     Indication: PANCREATIC CARCINOMA
     Route: 065
  2. AVASTIN [Suspect]
     Indication: PANCREATIC CARCINOMA
     Route: 065

REACTIONS (5)
  - Jaundice [Unknown]
  - Bile duct obstruction [Unknown]
  - Back pain [Unknown]
  - Rash [Unknown]
  - Blood test abnormal [Unknown]
